FAERS Safety Report 10567793 (Version 1)
Quarter: 2014Q4

REPORT INFORMATION
  Report Type: Spontaneous
  Country: CN (occurrence: CN)
  Receive Date: 20141106
  Receipt Date: 20141106
  Transmission Date: 20150529
  Serious: Yes (Hospitalization)
  Sender: FDA-Public Use
  Company Number: CN-ROCHE-1486039

PATIENT
  Age: 53 Year
  Sex: Female
  Weight: 53 kg

DRUGS (4)
  1. ENDOXAN [Suspect]
     Active Substance: CYCLOPHOSPHAMIDE
     Indication: T-CELL LYMPHOMA
     Route: 041
     Dates: start: 20140520, end: 20140520
  2. VINCRISTINE SULFATE. [Suspect]
     Active Substance: VINCRISTINE SULFATE
     Indication: T-CELL LYMPHOMA
     Route: 041
     Dates: start: 20140520, end: 20140520
  3. PHARMORUBICIN [Suspect]
     Active Substance: EPIRUBICIN
     Indication: T-CELL LYMPHOMA
     Route: 041
     Dates: start: 20140520, end: 20140520
  4. MABTHERA [Suspect]
     Active Substance: RITUXIMAB
     Indication: T-CELL LYMPHOMA
     Route: 041
     Dates: start: 20140520, end: 20140520

REACTIONS (1)
  - Bone marrow failure [Recovering/Resolving]

NARRATIVE: CASE EVENT DATE: 20140601
